FAERS Safety Report 9685936 (Version 1)
Quarter: 2013Q4

REPORT INFORMATION
  Report Type: Spontaneous
  Country: US (occurrence: US)
  Receive Date: 20131113
  Receipt Date: 20131113
  Transmission Date: 20140711
  Serious: Yes (Other)
  Sender: FDA-Public Use
  Company Number: US-BAYER-2013-136797

PATIENT
  Age: 19 Year
  Sex: Female

DRUGS (3)
  1. YAZ [Suspect]
     Dosage: UNK
  2. GIANVI [Suspect]
     Dosage: UNK
  3. EXCEDRIN MIGRAINE [Concomitant]
     Dosage: 250-250-65 MG
     Route: 048

REACTIONS (1)
  - Cholecystitis chronic [None]
